FAERS Safety Report 17576246 (Version 3)
Quarter: 2020Q2

REPORT INFORMATION
  Report Type: Spontaneous
  Country: JP (occurrence: JP)
  Receive Date: 20200324
  Receipt Date: 20200417
  Transmission Date: 20200713
  Serious: Yes (Death, Other)
  Sender: FDA-Public Use
  Company Number: JP-ABBVIE-20K-087-3334151-00

PATIENT
  Age: 70 Year
  Sex: Male

DRUGS (3)
  1. CICLESONIDE [Concomitant]
     Active Substance: CICLESONIDE
     Indication: CORONAVIRUS INFECTION
  2. KALETRA [Suspect]
     Active Substance: LOPINAVIR\RITONAVIR
     Indication: CORONAVIRUS INFECTION
     Dosage: (400 MG/100 MG)
     Route: 048
  3. CICLESONIDE [Concomitant]
     Active Substance: CICLESONIDE
     Dosage: INCREASED
     Route: 055

REACTIONS (3)
  - Off label use [Unknown]
  - Respiratory failure [Fatal]
  - Pneumothorax [Unknown]
